FAERS Safety Report 7373794-3 (Version None)
Quarter: 2011Q1

REPORT INFORMATION
  Report Type: 
  Country: None (occurrence: None)
  Receive Date: 20110325
  Receipt Date: 20110316
  Transmission Date: 20110831
  Serious: No
  Sender: FDA-Public Use
  Company Number: US-PFIZER INC-2011058306

PATIENT
  Sex: Female
  Weight: 28.118 kg

DRUGS (1)
  1. CHILDREN'S ADVIL [Suspect]
     Dosage: 1/2 TSP ONCE A DAY
     Route: 048
     Dates: start: 20110101, end: 20110101

REACTIONS (1)
  - OROPHARYNGEAL PAIN [None]
